FAERS Safety Report 17087430 (Version 2)
Quarter: 2019Q4

REPORT INFORMATION
  Report Type: Spontaneous
  Country: US (occurrence: US)
  Receive Date: 20191128
  Receipt Date: 20191218
  Transmission Date: 20200122
  Serious: No
  Sender: FDA-Public Use
  Company Number: US-BAUSCH-BL-2019-062027

PATIENT
  Age: 62 Year
  Sex: Female

DRUGS (3)
  1. REFRESH TEARS [Concomitant]
     Active Substance: CARBOXYMETHYLCELLULOSE SODIUM
     Indication: PRODUCT USED FOR UNKNOWN INDICATION
     Dosage: AS NEEDED
     Route: 047
  2. TOBRAMYCIN AND DEXAMETHASONE [Suspect]
     Active Substance: DEXAMETHASONE\TOBRAMYCIN
     Indication: PRODUCT USE IN UNAPPROVED INDICATION
  3. TOBRAMYCIN AND DEXAMETHASONE [Suspect]
     Active Substance: DEXAMETHASONE\TOBRAMYCIN
     Indication: CHALAZION
     Dosage: RIGHT EYE, STOPPED THE PRODUCT WITHIN 24 HOURS OF STARTING IT
     Route: 047
     Dates: start: 201910, end: 201910

REACTIONS (5)
  - Vision blurred [Not Recovered/Not Resolved]
  - Product use in unapproved indication [Unknown]
  - Eye allergy [Not Recovered/Not Resolved]
  - Product prescribing error [Unknown]
  - Visual impairment [Not Recovered/Not Resolved]

NARRATIVE: CASE EVENT DATE: 201910
